FAERS Safety Report 6878796-9 (Version None)
Quarter: 2010Q3

REPORT INFORMATION
  Report Type: 
  Country: None (occurrence: None)
  Receive Date: 20100728
  Receipt Date: 20100721
  Transmission Date: 20110219
  Serious: Yes (Other)
  Sender: FDA-Public Use
  Company Number: US-AMGEN-QUU408210

PATIENT
  Sex: Male
  Weight: 64 kg

DRUGS (13)
  1. SENSIPAR [Suspect]
     Indication: HYPERPARATHYROIDISM SECONDARY
     Route: 048
     Dates: start: 20091107, end: 20100419
  2. CRESTOR [Concomitant]
  3. LANTUS [Concomitant]
  4. NIACIN [Concomitant]
  5. COLACE [Concomitant]
  6. REGLAN [Concomitant]
  7. PRILOSEC [Concomitant]
  8. NEPHRO-CAPS [Concomitant]
  9. KLONOPIN [Concomitant]
  10. ASPIRIN [Concomitant]
  11. MIRAPEX [Concomitant]
  12. ENALAPRIL MALEATE [Concomitant]
  13. COREG [Concomitant]

REACTIONS (3)
  - BRONCHITIS [None]
  - SWOLLEN TONGUE [None]
  - TONGUE NEOPLASM MALIGNANT STAGE UNSPECIFIED [None]
